APPROVED DRUG PRODUCT: TEMODAR
Active Ingredient: TEMOZOLOMIDE
Strength: 180MG
Dosage Form/Route: CAPSULE;ORAL
Application: N021029 | Product #006
Applicant: MERCK SHARP AND DOHME CORP
Approved: Oct 19, 2006 | RLD: Yes | RS: No | Type: DISCN